FAERS Safety Report 8483442-7 (Version None)
Quarter: 2012Q3

REPORT INFORMATION
  Report Type: 
  Country: None (occurrence: None)
  Receive Date: 20120702
  Receipt Date: 20120626
  Transmission Date: 20120928
  Serious: Yes (Death, Hospitalization)
  Sender: FDA-Public Use
  Company Number: US-GILEAD-2012-0057203

PATIENT
  Age: 15 Year
  Sex: Female

DRUGS (3)
  1. RALTEGRAVIR [Concomitant]
     Indication: HIV INFECTION
  2. NEVIRAPINE [Concomitant]
     Indication: HIV INFECTION
  3. TRUVADA [Suspect]
     Indication: HIV INFECTION

REACTIONS (1)
  - IMMUNE RECONSTITUTION SYNDROME [None]
